FAERS Safety Report 19206833 (Version 1)
Quarter: 2021Q2

REPORT INFORMATION
  Report Type: Report from Study
  Country: DO (occurrence: DO)
  Receive Date: 20210430
  Receipt Date: 20210430
  Transmission Date: 20210717
  Serious: Yes (Life-Threatening, Other)
  Sender: FDA-Public Use
  Company Number: NVSC2021DO085712

PATIENT
  Age: 55 Year
  Sex: Female

DRUGS (4)
  1. KISQALI [Suspect]
     Active Substance: RIBOCICLIB
     Dosage: 600 MG, Q24H (PRESENTATION: 200 MG) (X 63)
     Route: 048
     Dates: start: 20210402
  2. KISQALI [Suspect]
     Active Substance: RIBOCICLIB
     Indication: BREAST CANCER
     Dosage: 600 MG, QD
     Route: 048
     Dates: start: 20210401
  3. KISQALI [Suspect]
     Active Substance: RIBOCICLIB
     Dosage: 600 MG, TID
     Route: 048
     Dates: start: 20210402
  4. KISQALI [Suspect]
     Active Substance: RIBOCICLIB
     Dosage: 400 MG
     Route: 048

REACTIONS (11)
  - Emotional disorder [Unknown]
  - Fatigue [Unknown]
  - Metastases to bone [Unknown]
  - Dehydration [Unknown]
  - Insomnia [Unknown]
  - White blood cell count decreased [Unknown]
  - Immunodeficiency [Unknown]
  - Somnolence [Unknown]
  - Dry mouth [Unknown]
  - Asthenia [Unknown]
  - Nausea [Unknown]

NARRATIVE: CASE EVENT DATE: 20210402
